FAERS Safety Report 15390617 (Version 2)
Quarter: 2018Q4

REPORT INFORMATION
  Report Type: Spontaneous
  Country: US (occurrence: US)
  Receive Date: 20180917
  Receipt Date: 20181025
  Transmission Date: 20190204
  Serious: Yes (Other)
  Sender: FDA-Public Use
  Company Number: US-LEXICON PHARMACEUTICALS, INC-18-1606-01113

PATIENT
  Age: 61 Year
  Sex: Male

DRUGS (5)
  1. LOMOTIL [Concomitant]
     Active Substance: ATROPINE SULFATE\DIPHENOXYLATE HYDROCHLORIDE
  2. LANREOTIDE [Concomitant]
     Active Substance: LANREOTIDE
  3. TELOTRISTAT ETHYL [Suspect]
     Active Substance: TELOTRISTAT ETHYL
     Route: 048
     Dates: start: 20180908
  4. AFINITOR [Concomitant]
     Active Substance: EVEROLIMUS
     Dates: end: 20180827
  5. TELOTRISTAT ETHYL [Suspect]
     Active Substance: TELOTRISTAT ETHYL
     Indication: CARCINOID SYNDROME
     Route: 048
     Dates: start: 20180622, end: 20180827

REACTIONS (2)
  - Fatigue [Not Recovered/Not Resolved]
  - Oral surgery [Not Recovered/Not Resolved]

NARRATIVE: CASE EVENT DATE: 2018
